FAERS Safety Report 4521076-7 (Version None)
Quarter: 2004Q4

REPORT INFORMATION
  Report Type: 
  Country: None (occurrence: None)
  Receive Date: 20041203
  Receipt Date: 20041125
  Transmission Date: 20050328
  Serious: Yes (Hospitalization)
  Sender: FDA-Public Use
  Company Number: HQWYE694029NOV04

PATIENT
  Age: 42 Year
  Sex: Female

DRUGS (1)
  1. ALESSE [Suspect]
     Dosage: 1 TABLET 1X PER 1 DAY ORAL
     Route: 048

REACTIONS (1)
  - COLITIS ISCHAEMIC [None]
